FAERS Safety Report 4724539-4 (Version None)
Quarter: 2005Q3

REPORT INFORMATION
  Report Type: 
  Country: None (occurrence: None)
  Receive Date: 20050719
  Receipt Date: 20050719
  Transmission Date: 20060218
  Serious: Yes (Hospitalization)
  Sender: FDA-Public Use
  Company Number: None

PATIENT
  Sex: Female
  Weight: 43.5 kg

DRUGS (6)
  1. GEMCITABINE 200 MG  LILLY PHARMACEUTICALS [Suspect]
     Indication: MALIGNANT NEOPLASM PROGRESSION
     Dosage: 675 MG/M2 IV
     Route: 042
     Dates: start: 20050712
  2. GEMCITABINE 200 MG  LILLY PHARMACEUTICALS [Suspect]
     Indication: OSTEOSARCOMA METASTATIC
     Dosage: 675 MG/M2 IV
     Route: 042
     Dates: start: 20050712
  3. DOCETAXEL 40 MG/ML  AVENTIS PHARMACEUTICALS [Suspect]
     Dosage: 75 MG/M2 IV    NOT GIVEN THIS CYCLE
     Route: 042
  4. ISONIAZID/PYRIDOXINE [Concomitant]
  5. BACITRACIN [Concomitant]
  6. DIPHENHYDRAMINE WITH VANCOMYCIN [Concomitant]

REACTIONS (6)
  - ERYTHEMA [None]
  - INCISION SITE CELLULITIS [None]
  - OEDEMA [None]
  - OEDEMA PERIPHERAL [None]
  - PROCEDURAL SITE REACTION [None]
  - TENDERNESS [None]
